FAERS Safety Report 7753798-9 (Version None)
Quarter: 2011Q3

REPORT INFORMATION
  Report Type: 
  Country: None (occurrence: None)
  Receive Date: 20110915
  Receipt Date: 20110912
  Transmission Date: 20111222
  Serious: Yes (Life-Threatening)
  Sender: FDA-Public Use
  Company Number: HU-TEVA-255392ISR

PATIENT
  Sex: Male

DRUGS (6)
  1. GOSERELIN ACETATE [Concomitant]
     Indication: PROSTATE CANCER METASTATIC
     Dosage: .12 MILLIGRAM;
     Route: 030
     Dates: start: 20060106
  2. PREDNISOLONE [Suspect]
     Indication: PROSTATE CANCER METASTATIC
     Route: 048
  3. AMLODIPINE [Concomitant]
     Indication: HYPERTONIA
     Dosage: 15 MILLIGRAM;
     Route: 048
     Dates: start: 20080703
  4. METAMIZOLUM [Concomitant]
     Indication: CANCER PAIN
     Route: 048
     Dates: start: 20080810
  5. ABIRATERONE ACETATE [Suspect]
     Indication: PROSTATE CANCER METASTATIC
     Route: 048
     Dates: start: 20081016, end: 20101021
  6. GOSERELIN ACETATE [Concomitant]
     Dosage: .12 MILLIGRAM;
     Dates: start: 20081016

REACTIONS (1)
  - HYPOPHOSPHATAEMIA [None]
